FAERS Safety Report 6113360-0 (Version None)
Quarter: 2009Q1

REPORT INFORMATION
  Report Type: 
  Country: None (occurrence: None)
  Receive Date: 20090312
  Receipt Date: 20001128
  Transmission Date: 20090719
  Serious: No
  Sender: FDA-Public Use
  Company Number: US-ABBOTT-08P-163-0456702-00

PATIENT
  Age: 78 Year

DRUGS (2)
  1. DEPAKOTE [Suspect]
     Indication: BIPOLAR DISORDER
  2. DEPAKOTE ER [Suspect]
     Indication: BIPOLAR DISORDER

REACTIONS (3)
  - ARRHYTHMIA [None]
  - DEHYDRATION [None]
  - DRUG LEVEL INCREASED [None]
